FAERS Safety Report 5426422-8 (Version None)
Quarter: 2007Q3

REPORT INFORMATION
  Report Type: 
  Country: None (occurrence: None)
  Receive Date: 20070827
  Receipt Date: 20070815
  Transmission Date: 20080115
  Serious: Yes (Hospitalization, Other)
  Sender: FDA-Public Use
  Company Number: JP-PFIZER INC-2006054808

PATIENT
  Sex: Male

DRUGS (5)
  1. VFEND [Suspect]
     Indication: BRONCHOPULMONARY ASPERGILLOSIS
     Route: 048
     Dates: start: 20060315, end: 20060404
  2. MUCOSOLVAN [Suspect]
     Indication: COUGH
     Route: 048
  3. ITOROL [Suspect]
     Indication: ANGINA PECTORIS
     Route: 048
  4. FRANDOL [Suspect]
     Indication: ANGINA PECTORIS
     Route: 065
  5. RIZE [Suspect]
     Indication: ANXIETY DISORDER
     Route: 048

REACTIONS (2)
  - INAPPROPRIATE ANTIDIURETIC HORMONE SECRETION [None]
  - LIVER DISORDER [None]
